FAERS Safety Report 22120197 (Version 1)
Quarter: 2023Q1

REPORT INFORMATION
  Report Type: Spontaneous
  Country: US (occurrence: None)
  Receive Date: 20230320
  Receipt Date: 20230320
  Transmission Date: 20230417
  Serious: No
  Sender: FDA-Public Use
  Company Number: None

PATIENT
  Sex: Male

DRUGS (1)
  1. OTEZLA [Suspect]
     Active Substance: APREMILAST
     Indication: Psoriasis
     Dosage: 30MG 2 TIMES A DAY BY MOUTH
     Route: 048
     Dates: start: 202106

REACTIONS (3)
  - Arthritis [None]
  - Pruritus [None]
  - Drug ineffective [None]
